FAERS Safety Report 7027203-4 (Version None)
Quarter: 2010Q4

REPORT INFORMATION
  Report Type: 
  Country: None (occurrence: None)
  Receive Date: 20101004
  Receipt Date: 20100920
  Transmission Date: 20110411
  Serious: Yes (Hospitalization)
  Sender: FDA-Public Use
  Company Number: KR-MYLANLABS-2010S1017177

PATIENT
  Age: 53 Year
  Sex: Male

DRUGS (1)
  1. FLUCONAZOLE [Suspect]
     Route: 065

REACTIONS (1)
  - PERITONEAL HAEMORRHAGE [None]
